FAERS Safety Report 14498942 (Version 1)
Quarter: 2018Q1

REPORT INFORMATION
  Report Type: Report from Study
  Country: ES (occurrence: ES)
  Receive Date: 20180207
  Receipt Date: 20180207
  Transmission Date: 20180509
  Serious: Yes (Life-Threatening, Hospitalization)
  Sender: FDA-Public Use
  Company Number: ES-PFIZER INC-2018050873

PATIENT
  Age: 40 Year
  Sex: Female

DRUGS (3)
  1. SOLU-MODERIN [Suspect]
     Active Substance: METHYLPREDNISOLONE
     Indication: PROPHYLAXIS AGAINST TRANSPLANT REJECTION
     Dosage: 125 MG, 1X/DAY
     Route: 042
     Dates: start: 20141031, end: 20141101
  2. MYCOPHENOLATE MOFETIL. [Concomitant]
     Active Substance: MYCOPHENOLATE MOFETIL
     Dosage: 1 G, 2X/DAY
     Route: 048
     Dates: start: 20141031
  3. TACROLIMUS. [Concomitant]
     Active Substance: TACROLIMUS
     Dosage: 4.5 MG, 2X/DAY
     Route: 048
     Dates: start: 20141031

REACTIONS (1)
  - Diverticulitis [Recovered/Resolved]

NARRATIVE: CASE EVENT DATE: 20141101
